FAERS Safety Report 14667430 (Version 20)
Quarter: 2023Q2

REPORT INFORMATION
  Report Type: Other
  Country: DE (occurrence: None)
  Receive Date: 20180322
  Receipt Date: 20230404
  Transmission Date: 20230722
  Serious: Yes (Death, Hospitalization, Disabling, Other)
  Sender: FDA-Public Use
  Company Number: DE-ROCHE-2079206

PATIENT
  Age: 44 Year
  Sex: Female
  Weight: 60 kg

DRUGS (14)
  1. OCREVUS [Suspect]
     Active Substance: OCRELIZUMAB
     Indication: Relapsing-remitting multiple sclerosis
     Route: 042
     Dates: start: 20180215, end: 201909
  2. OCREVUS [Suspect]
     Active Substance: OCRELIZUMAB
     Route: 042
     Dates: start: 20180912
  3. OCREVUS [Suspect]
     Active Substance: OCRELIZUMAB
     Route: 042
     Dates: start: 20190924, end: 20190924
  4. CORTISONE [Suspect]
     Active Substance: CORTISONE
     Indication: Premedication
     Route: 042
     Dates: start: 20180215
  5. MIRABEGRON [Suspect]
     Active Substance: MIRABEGRON
     Indication: Bladder irritation
     Route: 065
  6. DIMETHINDENE [Concomitant]
     Active Substance: DIMETHINDENE
     Indication: Premedication
     Route: 042
     Dates: start: 20180215
  7. ACETAMINOPHEN [Concomitant]
     Active Substance: ACETAMINOPHEN
     Indication: Premedication
     Route: 042
     Dates: start: 20180215
  8. ACETAMINOPHEN [Concomitant]
     Active Substance: ACETAMINOPHEN
     Dosage: AS REQUIRED
  9. DALFAMPRIDINE [Concomitant]
     Active Substance: DALFAMPRIDINE
  10. ESOMEPRAZOLE [Concomitant]
     Active Substance: ESOMEPRAZOLE
  11. BIOTIN [Concomitant]
     Active Substance: BIOTIN
  12. MAGNESIUM [Concomitant]
     Active Substance: MAGNESIUM
  13. NABIXIMOLS [Concomitant]
     Active Substance: NABIXIMOLS
  14. METHIONINE [Concomitant]
     Active Substance: METHIONINE

REACTIONS (26)
  - Pneumonia [Recovering/Resolving]
  - Fatigue [Recovered/Resolved]
  - Rash [Recovered/Resolved]
  - Headache [Recovered/Resolved]
  - Dizziness [Recovered/Resolved]
  - Nasopharyngitis [Recovered/Resolved]
  - Gait disturbance [Not Recovered/Not Resolved]
  - Balance disorder [Not Recovered/Not Resolved]
  - Body temperature increased [Recovered/Resolved]
  - Hypotonia [Recovered/Resolved]
  - Magnetic resonance imaging abnormal [Unknown]
  - Hypoaesthesia [Not Recovered/Not Resolved]
  - Dyspnoea [Recovered/Resolved]
  - Bladder irritation [Recovering/Resolving]
  - Drug ineffective [Unknown]
  - COVID-19 [Recovered/Resolved]
  - Cystitis noninfective [Recovered/Resolved]
  - SARS-CoV-2 antibody test negative [Unknown]
  - Vitamin B12 deficiency [Recovered/Resolved]
  - Muscle spasms [Unknown]
  - Muscle spasticity [Unknown]
  - Muscular weakness [Unknown]
  - Intervertebral disc protrusion [Unknown]
  - Haemangioma of bone [Unknown]
  - Neoplasm malignant [Unknown]
  - Pancreatic carcinoma metastatic [Fatal]

NARRATIVE: CASE EVENT DATE: 20180215
